FAERS Safety Report 12385088 (Version 2)
Quarter: 2016Q2

REPORT INFORMATION
  Report Type: Spontaneous
  Country: ES (occurrence: ES)
  Receive Date: 20160519
  Receipt Date: 20160524
  Transmission Date: 20160815
  Serious: Yes (Other)
  Sender: FDA-Public Use
  Company Number: ES-SUN PHARMACEUTICAL INDUSTRIES LTD-2016RR-116355

PATIENT
  Age: 72 Year
  Sex: Female

DRUGS (2)
  1. TOPIRAMATE. [Suspect]
     Active Substance: TOPIRAMATE
     Indication: PAIN
  2. TOPIRAMATE. [Suspect]
     Active Substance: TOPIRAMATE
     Indication: ADJUVANT THERAPY
     Dosage: 250 MG, DAILY
     Route: 065

REACTIONS (3)
  - Renal failure [Unknown]
  - Hydronephrosis [Unknown]
  - Nephrolithiasis [Unknown]
